FAERS Safety Report 4527745-7 (Version None)
Quarter: 2004Q4

REPORT INFORMATION
  Report Type: 
  Country: None (occurrence: None)
  Receive Date: 20041123
  Receipt Date: 20031008
  Transmission Date: 20050328
  Serious: Yes (Other)
  Sender: FDA-Public Use
  Company Number: 2003032889

PATIENT
  Age: 70 Year
  Sex: Male

DRUGS (7)
  1. LIPITOR [Suspect]
     Indication: HYPERLIPIDAEMIA
     Dosage: 10 MG
     Dates: start: 20010101
  2. NIFEDIPINE [Concomitant]
  3. ATENOLOL [Concomitant]
  4. GLIMEPIRIDE [Concomitant]
  5. . [Concomitant]
  6. ASPIRIN [Concomitant]
  7. VALSARTAN (VALSARTAN) [Concomitant]

REACTIONS (5)
  - BLOOD CREATINE PHOSPHOKINASE INCREASED [None]
  - LIVER FUNCTION TEST ABNORMAL [None]
  - MUSCULAR WEAKNESS [None]
  - MYOSITIS [None]
  - WEIGHT DECREASED [None]
